FAERS Safety Report 11219741 (Version 1)
Quarter: 2015Q2

REPORT INFORMATION
  Report Type: Spontaneous
  Country: US (occurrence: US)
  Receive Date: 20150625
  Receipt Date: 20150625
  Transmission Date: 20150821
  Serious: No
  Sender: FDA-Public Use
  Company Number: US-GLAXOSMITHKLINE-US2015GSK088829

PATIENT
  Sex: Female

DRUGS (1)
  1. BUPROPION TABLET [Suspect]
     Active Substance: BUPROPION
     Indication: DEPRESSION
     Dosage: 150 MG, UNK
     Dates: start: 201502

REACTIONS (2)
  - Tinnitus [Unknown]
  - Drug ineffective [Unknown]
